FAERS Safety Report 18337117 (Version 4)
Quarter: 2022Q1

REPORT INFORMATION
  Report Type: Spontaneous
  Country: US (occurrence: None)
  Receive Date: 20201001
  Receipt Date: 20220318
  Transmission Date: 20220423
  Serious: Yes (Other)
  Sender: FDA-Public Use
  Company Number: US-ROCHE-2686585

PATIENT
  Sex: Male
  Weight: 154.36 kg

DRUGS (2)
  1. ERIVEDGE [Suspect]
     Active Substance: VISMODEGIB
     Indication: Basal cell carcinoma
     Dosage: ONGOING: NO
     Route: 048
     Dates: start: 20190503, end: 202006
  2. IMIQUIMOD [Concomitant]
     Active Substance: IMIQUIMOD
     Dosage: 5% APPLIES DAILY
     Route: 061
     Dates: start: 202009

REACTIONS (2)
  - Paternal exposure during pregnancy [Unknown]
  - Muscle spasms [Recovered/Resolved]
